FAERS Safety Report 22738428 (Version 4)
Quarter: 2024Q2

REPORT INFORMATION
  Report Type: Spontaneous
  Country: US (occurrence: US)
  Receive Date: 20230721
  Receipt Date: 20240417
  Transmission Date: 20240716
  Serious: Yes (Other)
  Sender: FDA-Public Use
  Company Number: US-PFIZER INC-PV202300124077

PATIENT
  Age: 64 Year
  Sex: Female
  Weight: 77.551 kg

DRUGS (2)
  1. IBRANCE [Suspect]
     Active Substance: PALBOCICLIB
     Indication: Breast cancer female
     Dosage: 1 TABLET DAILY ADMINISTER ON DAYS 1 THROUGH 21 OF A 28 DAY TREATMENT CYCLE
     Route: 048
  2. LETROZOLE [Concomitant]
     Active Substance: LETROZOLE
     Indication: Breast cancer female
     Dosage: UNK

REACTIONS (4)
  - Leukopenia [Unknown]
  - Anaemia [Unknown]
  - Fatigue [Not Recovered/Not Resolved]
  - Full blood count abnormal [Unknown]
